FAERS Safety Report 6379885-8 (Version None)
Quarter: 2009Q3

REPORT INFORMATION
  Report Type: 
  Country: None (occurrence: None)
  Receive Date: 20090923
  Receipt Date: 20090915
  Transmission Date: 20100115
  Serious: Yes (Hospitalization, Disabling)
  Sender: FDA-Public Use
  Company Number: SPV1-2009-00526

PATIENT
  Age: 64 Year
  Sex: Male

DRUGS (10)
  1. FOSRENOL [Suspect]
     Indication: HYPERPHOSPHATAEMIA
     Dosage: ORAL
     Route: 048
     Dates: start: 20090319, end: 20090321
  2. RENAGEL [Concomitant]
  3. AMLODIPINE BESYLATE [Concomitant]
  4. ALLOPURINOL [Concomitant]
  5. PROTECADIN (LAFUTIDINE) [Concomitant]
  6. NICARDIPINE HYDROCHLORIDE [Concomitant]
  7. HOKUNALIN (TULOBUTEROL HYDROCHLORIDE) [Concomitant]
  8. MICARDIS [Concomitant]
  9. LIPOVATOL (SIMVASTATIN) [Concomitant]
  10. ALOSENN /00476901/ (ACHILLEA MILLEFOLIUM, RUBIA TINCTORUM ROOT TINCTUR [Concomitant]

REACTIONS (4)
  - ASCITES [None]
  - GALLBLADDER ENLARGEMENT [None]
  - ILEUS [None]
  - RENAL ATROPHY [None]
